FAERS Safety Report 15938238 (Version 1)
Quarter: 2019Q1

REPORT INFORMATION
  Report Type: Spontaneous
  Country: US (occurrence: US)
  Receive Date: 20190208
  Receipt Date: 20190208
  Transmission Date: 20190417
  Serious: No
  Sender: FDA-Public Use
  Company Number: US-ROCHE-2199397

PATIENT
  Sex: Female
  Weight: 49.03 kg

DRUGS (11)
  1. CARDIZEM [Concomitant]
     Active Substance: DILTIAZEM HYDROCHLORIDE
     Indication: ATRIAL FIBRILLATION
     Dosage: ONGOING: YES
     Route: 065
     Dates: start: 1996
  2. XOLAIR [Suspect]
     Active Substance: OMALIZUMAB
     Indication: ASTHMA
     Dosage: GETS 2 INJECTIONS IN STOMACH, 150 MG EACH;ONGOING: YES
     Route: 058
     Dates: start: 20180920
  3. RITUXAN [Suspect]
     Active Substance: RITUXIMAB
     Indication: LYMPHOMA
     Dosage: TOOK FOR A MONTH; 4 TIMES TOTAL ;ONGOING: NO
     Route: 065
  4. CARDIZEM [Concomitant]
     Active Substance: DILTIAZEM HYDROCHLORIDE
     Indication: ATRIAL TACHYCARDIA
  5. SINGULAIR [Concomitant]
     Active Substance: MONTELUKAST SODIUM
     Indication: ASTHMA
     Dosage: ONGOING: YES
     Route: 065
  6. LIPITOR [Concomitant]
     Active Substance: ATORVASTATIN CALCIUM
     Dosage: ONGOING: YES
     Route: 065
  7. ADVAIR HFA [Concomitant]
     Active Substance: FLUTICASONE PROPIONATE\SALMETEROL XINAFOATE
     Indication: ASTHMA
     Dosage: ONGOING: YES
     Route: 065
     Dates: start: 2016
  8. SPIRIVA [Concomitant]
     Active Substance: TIOTROPIUM BROMIDE MONOHYDRATE
     Dosage: ONGOING: YES
     Route: 065
  9. PRADAXA [Concomitant]
     Active Substance: DABIGATRAN ETEXILATE MESYLATE
     Indication: ATRIAL FIBRILLATION
     Dosage: ONGOING: YES
     Route: 065
     Dates: start: 2010
  10. LEVALBUTEROL. [Concomitant]
     Active Substance: LEVALBUTEROL
     Indication: PNEUMONIA
     Dosage: TAKES VIA NEBULIZER; ONGOING: YES
     Route: 065
     Dates: start: 2018
  11. IPRATROPIUM BROMIDE. [Concomitant]
     Active Substance: IPRATROPIUM BROMIDE
     Indication: PNEUMONIA
     Dosage: TAKES VIA NEBULIZER ;ONGOING: YES
     Route: 065
     Dates: start: 2018

REACTIONS (1)
  - Alopecia [Not Recovered/Not Resolved]
